FAERS Safety Report 7729345-4 (Version None)
Quarter: 2011Q3

REPORT INFORMATION
  Report Type: 
  Country: None (occurrence: None)
  Receive Date: 20110831
  Receipt Date: 20110831
  Transmission Date: 20111222
  Serious: Yes (Hospitalization)
  Sender: FDA-Public Use
  Company Number: None

PATIENT
  Sex: Female
  Weight: 136 kg

DRUGS (2)
  1. TOPOTECAN [Suspect]
     Dosage: 1.5 MG
     Dates: end: 20110727
  2. TAXOL [Suspect]
     Dosage: 350 MG
     Dates: end: 20110725

REACTIONS (5)
  - URINARY TRACT INFECTION [None]
  - NAUSEA [None]
  - LYMPHADENOPATHY [None]
  - WHITE BLOOD CELL COUNT INCREASED [None]
  - BACTERIAL TEST POSITIVE [None]
